FAERS Safety Report 6430620-4 (Version None)
Quarter: 2009Q4

REPORT INFORMATION
  Report Type: 
  Country: None (occurrence: None)
  Receive Date: 20091106
  Receipt Date: 20091031
  Transmission Date: 20100525
  Serious: Yes (Other)
  Sender: FDA-Public Use
  Company Number: A0815411A

PATIENT
  Age: 65 Year
  Sex: Female

DRUGS (3)
  1. TYKERB [Suspect]
     Indication: BREAST CANCER
     Dosage: 250MG UNKNOWN
     Route: 048
     Dates: start: 20080301
  2. CAPECITABINE [Suspect]
     Indication: BREAST CANCER
     Dates: start: 20070601, end: 20081101
  3. TRASTUZUMAB [Concomitant]

REACTIONS (3)
  - BREAST CANCER METASTATIC [None]
  - BREAST CANCER RECURRENT [None]
  - METASTATIC NEOPLASM [None]
